FAERS Safety Report 7207276-6 (Version None)
Quarter: 2011Q1

REPORT INFORMATION
  Report Type: 
  Country: None (occurrence: None)
  Receive Date: 20110103
  Receipt Date: 20101219
  Transmission Date: 20110831
  Serious: Yes (Other)
  Sender: FDA-Public Use
  Company Number: IL-AMGEN-ISRSP2010012504

PATIENT

DRUGS (4)
  1. ENBREL [Suspect]
     Dosage: 25 MG, 2X/WEEK
  2. ISONIAZID [Concomitant]
  3. NEOTIGASON [Concomitant]
  4. SIMVASTATIN [Concomitant]

REACTIONS (1)
  - DYSPNOEA [None]
